FAERS Safety Report 14708240 (Version 5)
Quarter: 2018Q3

REPORT INFORMATION
  Report Type: Report from Study
  Country: None (occurrence: US)
  Receive Date: 20180403
  Receipt Date: 20180716
  Transmission Date: 20181010
  Serious: Yes (Hospitalization, Other)
  Sender: FDA-Public Use
  Company Number: US-BAUSCH-BL-2018-009181

PATIENT
  Age: 52 Year
  Sex: Male
  Weight: 160.72 kg

DRUGS (8)
  1. MAGNESIUM [Concomitant]
     Active Substance: MAGNESIUM
     Indication: PRODUCT USED FOR UNKNOWN INDICATION
  2. XIFAXAN [Suspect]
     Active Substance: RIFAXIMIN
     Indication: HEPATIC ENCEPHALOPATHY
     Route: 048
     Dates: start: 2012
  3. XIFAXAN [Suspect]
     Active Substance: RIFAXIMIN
     Dosage: STATED AROUND 17/MAR/2018
     Route: 048
     Dates: start: 201803, end: 201803
  4. LACTULOSE. [Concomitant]
     Active Substance: LACTULOSE
     Indication: PRODUCT USED FOR UNKNOWN INDICATION
     Dosage: TWO OR THREE TABLESPOONS, 3 OR 4 TIMES A DAY
  5. HUMALOG U?500 [Concomitant]
     Indication: PRODUCT USED FOR UNKNOWN INDICATION
  6. LANTUS [Concomitant]
     Active Substance: INSULIN GLARGINE
     Indication: PRODUCT USED FOR UNKNOWN INDICATION
  7. OTC MULTIVITAMINS [Concomitant]
     Indication: PRODUCT USED FOR UNKNOWN INDICATION
  8. XIFAXAN [Suspect]
     Active Substance: RIFAXIMIN
     Dosage: ON 29 OR 30TH JUN 2018
     Route: 048
     Dates: start: 201806

REACTIONS (18)
  - Treatment noncompliance [Not Recovered/Not Resolved]
  - Loss of consciousness [Recovered/Resolved]
  - Hepatic cirrhosis [Unknown]
  - Amnesia [Recovering/Resolving]
  - Varices oesophageal [Unknown]
  - Fall [Recovered/Resolved]
  - Ammonia increased [Unknown]
  - Abdominal pain upper [Unknown]
  - Hospitalisation [Recovered/Resolved]
  - Oxygen saturation decreased [Not Recovered/Not Resolved]
  - Dizziness [Unknown]
  - Liver disorder [Unknown]
  - Oedema [Unknown]
  - Dehydration [Unknown]
  - Feeling abnormal [Recovered/Resolved]
  - Head injury [Recovered/Resolved]
  - Incorrect dose administered [Recovered/Resolved]
  - Pain [Unknown]

NARRATIVE: CASE EVENT DATE: 2012
